FAERS Safety Report 10423920 (Version 2)
Quarter: 2015Q3

REPORT INFORMATION
  Report Type: Spontaneous
  Country: US (occurrence: US)
  Receive Date: 20140902
  Receipt Date: 20150706
  Transmission Date: 20151125
  Serious: Yes (Hospitalization, Disabling)
  Sender: FDA-Public Use
  Company Number: US-PFIZER INC-2014241635

PATIENT
  Age: 63 Year
  Sex: Female
  Weight: 84 kg

DRUGS (5)
  1. XANAX [Suspect]
     Active Substance: ALPRAZOLAM
     Indication: POST-TRAUMATIC STRESS DISORDER
  2. NEURONTIN [Suspect]
     Active Substance: GABAPENTIN
     Indication: MYALGIA
     Dosage: 6 DF, 1X/DAY (300 OR 350MG)
     Dates: start: 2011
  3. OXYCODONE [Suspect]
     Active Substance: OXYCODONE
     Indication: PAIN
     Dosage: 10 MG, 3X/DAY
  4. XANAX [Suspect]
     Active Substance: ALPRAZOLAM
     Indication: ATTENTION DEFICIT/HYPERACTIVITY DISORDER
     Dosage: TWO 2MG TABLETS A DAY
     Dates: start: 2010
  5. NEURONTIN [Suspect]
     Active Substance: GABAPENTIN
     Indication: BONE PAIN

REACTIONS (5)
  - Malaise [Unknown]
  - Feeling abnormal [Unknown]
  - Panic disorder [Unknown]
  - Cerebrovascular accident [Unknown]
  - Nausea [Unknown]

NARRATIVE: CASE EVENT DATE: 201502
